FAERS Safety Report 9026861 (Version 3)
Quarter: 2013Q1

REPORT INFORMATION
  Report Type: Spontaneous
  Country: JP (occurrence: JP)
  Receive Date: 20130123
  Receipt Date: 20130219
  Transmission Date: 20140127
  Serious: No
  Sender: FDA-Public Use
  Company Number: JP-VERTEX PHARMACEUTICALS INC.-2013-000932

PATIENT
  Age: 67 Year
  Sex: Female

DRUGS (13)
  1. TELAVIC [Suspect]
     Indication: CHRONIC HEPATITIS C
     Dosage: 1500 MG, QD
     Route: 048
     Dates: start: 20121031, end: 20130123
  2. PEGINTRON [Suspect]
     Indication: CHRONIC HEPATITIS C
     Dosage: 1.5 ?G/KG, QW
     Route: 058
     Dates: start: 20121031
  3. PEGINTRON [Suspect]
     Dosage: 1 ?G/KG, QW
     Route: 058
     Dates: start: 20121107
  4. REBETOL [Suspect]
     Indication: CHRONIC HEPATITIS C
     Dosage: 600 MG, QD
     Route: 048
     Dates: start: 20121031, end: 20121113
  5. REBETOL [Suspect]
     Dosage: 200 MG, QD
     Route: 048
     Dates: start: 20121114
  6. URSO [Suspect]
     Indication: CHRONIC HEPATITIS C
     Dosage: 900 MG, QD
     Route: 048
     Dates: end: 20121030
  7. MYSLEE [Suspect]
     Indication: CONCOMITANT DISEASE PROGRESSION
     Dosage: 5 MG, QD
     Route: 048
     Dates: start: 20080521
  8. ALESION [Suspect]
     Indication: PROPHYLAXIS
     Dosage: 20 MG, QD
     Route: 048
     Dates: start: 20121031
  9. PARIET [Suspect]
     Indication: PROPHYLAXIS
     Dosage: 10 MG, QD
     Route: 048
     Dates: start: 20121031
  10. GASMOTIN [Suspect]
     Indication: CONCOMITANT DISEASE PROGRESSION
     Dosage: 15 MG, QD
     Route: 048
     Dates: start: 20121102
  11. ZYLORIC [Suspect]
     Indication: CONCOMITANT DISEASE PROGRESSION
     Dosage: 200 MG, QD
     Route: 048
     Dates: start: 20121106
  12. ALINAMIN F [Suspect]
     Indication: CONCOMITANT DISEASE PROGRESSION
     Dosage: 75 MG, QD
     Route: 048
     Dates: start: 20130123
  13. CALONAL [Suspect]
     Indication: CONCOMITANT DISEASE PROGRESSION
     Dosage: 300 MG, PRN
     Route: 048
     Dates: start: 20121031

REACTIONS (5)
  - Eczema asteatotic [Recovered/Resolved]
  - Drug eruption [None]
  - Pruritus [None]
  - Papule [None]
  - Erythema [None]
